FAERS Safety Report 7501333-2 (Version None)
Quarter: 2011Q2

REPORT INFORMATION
  Report Type: 
  Country: None (occurrence: None)
  Receive Date: 20110524
  Receipt Date: 20110516
  Transmission Date: 20111010
  Serious: Yes (Congenital Anomaly, Other)
  Sender: FDA-Public Use
  Company Number: US-PFIZER INC-2011105747

PATIENT
  Sex: Male
  Weight: 2.84 kg

DRUGS (1)
  1. EFFEXOR XR [Suspect]
     Dosage: 75 MG, 1X/DAY
     Route: 064
     Dates: start: 20090101

REACTIONS (13)
  - HYDROCELE [None]
  - HYDRONEPHROSIS [None]
  - ANAEMIA [None]
  - CEREBRAL VENTRICLE DILATATION [None]
  - MENINGOMYELOCELE [None]
  - HYDROCEPHALUS [None]
  - PARALYSIS [None]
  - DRUG EXPOSURE DURING PREGNANCY [None]
  - UMBILICAL HERNIA [None]
  - CONGENITAL CENTRAL NERVOUS SYSTEM ANOMALY [None]
  - CONGENITAL AQUEDUCTAL STENOSIS [None]
  - CELLULITIS [None]
  - NERVOUS SYSTEM DISORDER [None]
